FAERS Safety Report 5497813-4 (Version None)
Quarter: 2007Q4

REPORT INFORMATION
  Report Type: 
  Country: None (occurrence: None)
  Receive Date: 20071025
  Receipt Date: 20070305
  Transmission Date: 20080405
  Serious: No
  Sender: FDA-Public Use
  Company Number: A0641911A

PATIENT
  Age: 35 Year
  Sex: Female

DRUGS (9)
  1. ADVAIR DISKUS 100/50 [Suspect]
     Indication: ASTHMA
     Dosage: 1PUFF TWICE PER DAY
     Route: 055
     Dates: start: 20050101
  2. RHINOCORT [Concomitant]
  3. ZYRTEC [Concomitant]
  4. EXTRA STRENGTH TYLENOL [Concomitant]
  5. DIFLUCAN [Concomitant]
  6. MONISTAT [Concomitant]
  7. LEVAQUIN [Concomitant]
  8. PREDNISONE [Concomitant]
  9. ALLERGY INJECTIONS [Concomitant]

REACTIONS (12)
  - ABDOMINAL PAIN [None]
  - ABDOMINAL PAIN LOWER [None]
  - AMNESIA [None]
  - BACTERIAL INFECTION [None]
  - DRUG INEFFECTIVE [None]
  - FEELING JITTERY [None]
  - HEADACHE [None]
  - MUSCLE SPASMS [None]
  - MUSCLE TWITCHING [None]
  - RASH [None]
  - VULVOVAGINAL MYCOTIC INFECTION [None]
  - VULVOVAGINAL PRURITUS [None]
